FAERS Safety Report 25225029 (Version 1)
Quarter: 2025Q2

REPORT INFORMATION
  Report Type: Spontaneous
  Country: US (occurrence: None)
  Receive Date: 20250421
  Receipt Date: 20250421
  Transmission Date: 20250716
  Serious: Yes (Hospitalization)
  Sender: FDA-CTU
  Company Number: None

PATIENT
  Age: 74 Year
  Sex: Male
  Weight: 77.9 kg

DRUGS (2)
  1. CABOZANTINIB [Suspect]
     Active Substance: CABOZANTINIB
     Indication: Renal cell carcinoma
     Dosage: FREQUENCY : DAILY;?
     Route: 048
     Dates: end: 20240724
  2. NIVOLUMAB [Suspect]
     Active Substance: NIVOLUMAB
     Indication: Renal cell carcinoma
     Route: 042
     Dates: start: 20231215

REACTIONS (8)
  - Fall [None]
  - Hypotension [None]
  - Subcutaneous abscess [None]
  - Sepsis [None]
  - Leukocytosis [None]
  - Tachycardia [None]
  - Fungal infection [None]
  - Culture wound positive [None]

NARRATIVE: CASE EVENT DATE: 20250419
